FAERS Safety Report 15858001 (Version 3)
Quarter: 2019Q1

REPORT INFORMATION
  Report Type: Spontaneous
  Country: US (occurrence: US)
  Receive Date: 20190123
  Receipt Date: 20190130
  Transmission Date: 20190417
  Serious: Yes (Other)
  Sender: FDA-Public Use
  Company Number: US-PFIZER INC-2019027789

PATIENT
  Age: 76 Year
  Sex: Male

DRUGS (5)
  1. RIVAROXABAN [Interacting]
     Active Substance: RIVAROXABAN
     Indication: ATRIAL FIBRILLATION
  2. RIVAROXABAN [Interacting]
     Active Substance: RIVAROXABAN
     Indication: CARDIOMYOPATHY
     Dosage: 20 MG, DAILY
     Route: 065
  3. RIVAROXABAN [Interacting]
     Active Substance: RIVAROXABAN
     Indication: VENTRICULAR TACHYCARDIA
  4. AMIODARONE HCL [Interacting]
     Active Substance: AMIODARONE HYDROCHLORIDE
     Dosage: 200 MG, DAILY
     Route: 065
  5. AMIODARONE HCL [Suspect]
     Active Substance: AMIODARONE HYDROCHLORIDE
     Indication: VENTRICULAR TACHYCARDIA
     Dosage: 400 MG, DAILY (HIGHER DOSE)
     Route: 065

REACTIONS (2)
  - Prothrombin time prolonged [Recovering/Resolving]
  - Drug interaction [Recovering/Resolving]
